FAERS Safety Report 7457793-9 (Version None)
Quarter: 2011Q2

REPORT INFORMATION
  Report Type: 
  Country: None (occurrence: None)
  Receive Date: 20110504
  Receipt Date: 20110420
  Transmission Date: 20111010
  Serious: Yes (Hospitalization)
  Sender: FDA-Public Use
  Company Number: PHHY2011FR34637

PATIENT
  Sex: Female

DRUGS (2)
  1. LEVOTHYROX [Suspect]
     Indication: HYPOTHYROIDISM
     Dosage: 100 UG, QD
  2. FEMARA [Suspect]
     Indication: BREAST CANCER
     Dosage: 2.5 MG, QD
     Route: 048
     Dates: start: 20030101

REACTIONS (5)
  - DYSPNOEA [None]
  - ARRHYTHMIA [None]
  - PALPITATIONS [None]
  - BLOOD THYROID STIMULATING HORMONE INCREASED [None]
  - CONDUCTION DISORDER [None]
